FAERS Safety Report 7028790-2 (Version None)
Quarter: 2010Q4

REPORT INFORMATION
  Report Type: 
  Country: None (occurrence: None)
  Receive Date: 20101004
  Receipt Date: 20101004
  Transmission Date: 20110411
  Serious: Yes (Hospitalization)
  Sender: FDA-Public Use
  Company Number: None

PATIENT
  Sex: Male
  Weight: 97 kg

DRUGS (4)
  1. REVLIMID [Suspect]
     Indication: ACUTE MYELOID LEUKAEMIA
     Dosage: 50 MG QD DAYS 1-28 PO
     Route: 048
     Dates: start: 20100913
  2. REVLIMID [Suspect]
     Indication: MYELODYSPLASTIC SYNDROME
     Dosage: 50 MG QD DAYS 1-28 PO
     Route: 048
     Dates: start: 20100913
  3. AZACITIDINE [Suspect]
     Indication: ACUTE MYELOID LEUKAEMIA
     Dosage: 25 MG DAYS 1-5 OF 28D CYCLE IV
     Route: 042
     Dates: start: 20100913
  4. AZACITIDINE [Suspect]
     Indication: MYELODYSPLASTIC SYNDROME
     Dosage: 25 MG DAYS 1-5 OF 28D CYCLE IV
     Route: 042
     Dates: start: 20100913

REACTIONS (4)
  - ABSCESS [None]
  - DYSPNOEA [None]
  - FATIGUE [None]
  - PANCYTOPENIA [None]
